FAERS Safety Report 4698096-5 (Version None)
Quarter: 2005Q2

REPORT INFORMATION
  Report Type: 
  Country: None (occurrence: None)
  Receive Date: 20050621
  Receipt Date: 20050608
  Transmission Date: 20051028
  Serious: Yes (Hospitalization)
  Sender: FDA-Public Use
  Company Number: 2005086793

PATIENT
  Age: 36 Year
  Sex: Male

DRUGS (1)
  1. ZITHROMAX [Suspect]
     Indication: PHARYNGOLARYNGEAL PAIN
     Dosage: 500 MG (250 MG, DAILY), ORAL
     Route: 048
     Dates: start: 20040428, end: 20050501

REACTIONS (4)
  - ARTHRALGIA [None]
  - CUTANEOUS VASCULITIS [None]
  - PYREXIA [None]
  - RASH [None]
